FAERS Safety Report 13211152 (Version 1)
Quarter: 2017Q1

REPORT INFORMATION
  Report Type: Spontaneous
  Country: US (occurrence: US)
  Receive Date: 20170210
  Receipt Date: 20170210
  Transmission Date: 20170428
  Serious: Yes (Hospitalization)
  Sender: FDA-Public Use
  Company Number: US-PFIZER INC-2017058852

PATIENT
  Age: 74 Year
  Sex: Female
  Weight: 122.47 kg

DRUGS (1)
  1. IBRANCE [Suspect]
     Active Substance: PALBOCICLIB
     Indication: BREAST CANCER
     Dosage: 125 MG, CYCLIC (125 MG, CAPSULE, ORALLY, ONCE A DAY FOR 21 DAYS)
     Route: 048

REACTIONS (1)
  - Urinary tract infection [Not Recovered/Not Resolved]
